FAERS Safety Report 7462390-5 (Version None)
Quarter: 2011Q2

REPORT INFORMATION
  Report Type: 
  Country: None (occurrence: None)
  Receive Date: 20110506
  Receipt Date: 20110428
  Transmission Date: 20111010
  Serious: Yes (Other)
  Sender: FDA-Public Use
  Company Number: CH-NOVOPROD-327385

PATIENT
  Age: 67 Year
  Sex: Female

DRUGS (5)
  1. LEVOTHYROXINE SODIUM [Concomitant]
     Dosage: 125 UG, QD
     Route: 065
  2. METFORMIN [Concomitant]
     Dosage: 850 MG, QD
     Route: 065
  3. VICTOZA [Suspect]
     Indication: TYPE 2 DIABETES MELLITUS
     Dosage: 1.8 MG, QD
     Route: 065
     Dates: start: 20100501
  4. ACETYLSALICYLIC ACID [Concomitant]
     Dosage: 100 MG, QD
     Route: 065
  5. PANTOPRAZOLE [Concomitant]
     Dosage: 40 MG, QD

REACTIONS (1)
  - PSORIASIS [None]
